FAERS Safety Report 20877672 (Version 1)
Quarter: 2022Q2

REPORT INFORMATION
  Report Type: Other
  Country: JP (occurrence: JP)
  Receive Date: 20220526
  Receipt Date: 20220526
  Transmission Date: 20220721
  Serious: Yes (Hospitalization)
  Sender: FDA-Public Use
  Company Number: JP-CHUGAI-2022018597

PATIENT
  Age: 57 Year
  Sex: Female
  Weight: 45.3 kg

DRUGS (3)
  1. ATEZOLIZUMAB [Suspect]
     Active Substance: ATEZOLIZUMAB
     Indication: Neuroendocrine tumour of the lung
     Dosage: 1200 MILLIGRAM, SINGLE
     Route: 041
     Dates: start: 20210401, end: 20210401
  2. CARBOPLATIN [Concomitant]
     Active Substance: CARBOPLATIN
     Indication: Neuroendocrine tumour of the lung
     Dosage: 456 MILLIGRAM, SINGLE
     Route: 041
     Dates: start: 20210401, end: 20210401
  3. ETOPOSIDE [Concomitant]
     Active Substance: ETOPOSIDE
     Indication: Neuroendocrine tumour of the lung
     Dosage: 140 MILLIGRAM
     Route: 041
     Dates: start: 20210401, end: 20210403

REACTIONS (3)
  - Neutrophil count decreased [Recovering/Resolving]
  - Renal disorder [Recovering/Resolving]
  - Pyrexia [Recovering/Resolving]

NARRATIVE: CASE EVENT DATE: 20210412
